FAERS Safety Report 11876456 (Version 3)
Quarter: 2016Q3

REPORT INFORMATION
  Report Type: Spontaneous
  Country: US (occurrence: US)
  Receive Date: 20151229
  Receipt Date: 20160722
  Transmission Date: 20161109
  Serious: Yes (Other)
  Sender: FDA-Public Use
  Company Number: US-PFIZER INC-2015427866

PATIENT
  Age: 59 Year
  Sex: Female

DRUGS (4)
  1. XELJANZ [Suspect]
     Active Substance: TOFACITINIB CITRATE
     Dosage: UNK UNK, 2X/DAY
     Dates: start: 20151203
  2. XELJANZ [Suspect]
     Active Substance: TOFACITINIB CITRATE
     Dosage: 5 MG, 1 TABLET BY MOUTH EVERY TWO WEEKS
     Route: 048
     Dates: start: 20151217
  3. XELJANZ [Suspect]
     Active Substance: TOFACITINIB CITRATE
     Indication: RHEUMATOID ARTHRITIS
     Dosage: UNK UNK, 1X/DAY
  4. VITAMIN D [Concomitant]
     Active Substance: CHOLECALCIFEROL
     Dosage: HIGH DOSE

REACTIONS (9)
  - Drug ineffective [Unknown]
  - Ankle fracture [Unknown]
  - Product use issue [Unknown]
  - Abnormal faeces [Unknown]
  - Rosacea [Unknown]
  - Root canal infection [Unknown]
  - Condition aggravated [Unknown]
  - Sialoadenitis [Unknown]
  - Tuberculin test positive [Unknown]
